FAERS Safety Report 11333952 (Version 1)
Quarter: 2015Q3

REPORT INFORMATION
  Report Type: Spontaneous
  Country: US (occurrence: US)
  Receive Date: 20150803
  Receipt Date: 20150803
  Transmission Date: 20151125
  Serious: No
  Sender: FDA-Public Use
  Company Number: US-BAXALTA-2015BLT000753

PATIENT
  Age: 55 Year
  Sex: Female
  Weight: 75.45 kg

DRUGS (3)
  1. GAMMAGARD LIQUID [Suspect]
     Active Substance: HUMAN IMMUNOGLOBULIN G
     Indication: IMMUNODEFICIENCY COMMON VARIABLE
     Dosage: 0.1 G/ML, EVERY 3 WK
     Route: 042
     Dates: start: 20150521
  2. CARIMUNE [Suspect]
     Active Substance: HUMAN IMMUNOGLOBULIN G
     Indication: IMMUNODEFICIENCY COMMON VARIABLE
     Dosage: UNK
     Dates: start: 2007
  3. PRIVIGEN [Suspect]
     Active Substance: HUMAN IMMUNOGLOBULIN G
     Indication: IMMUNODEFICIENCY COMMON VARIABLE
     Dosage: STARTED AFTER CARIMUNE

REACTIONS (14)
  - Bone density decreased [Recovering/Resolving]
  - Headache [Recovering/Resolving]
  - Constipation [Recovering/Resolving]
  - Dyspepsia [Recovering/Resolving]
  - Discomfort [Recovering/Resolving]
  - Abdominal distension [Recovering/Resolving]
  - Ear swelling [Recovering/Resolving]
  - Arthralgia [Recovering/Resolving]
  - Unevaluable event [Recovering/Resolving]
  - Vomiting [Recovering/Resolving]
  - Tooth loss [Recovering/Resolving]
  - Oral candidiasis [Recovering/Resolving]
  - Asthenia [Recovering/Resolving]
  - Nausea [Recovering/Resolving]

NARRATIVE: CASE EVENT DATE: 20150526
